FAERS Safety Report 24200438 (Version 1)
Quarter: 2024Q3

REPORT INFORMATION
  Report Type: Spontaneous
  Country: US (occurrence: None)
  Receive Date: 20240809
  Receipt Date: 20240809
  Transmission Date: 20241017
  Serious: Yes (Hospitalization)
  Sender: Public
  Company Number: None

PATIENT
  Age: 48 Year
  Sex: Female
  Weight: 58.5 kg

DRUGS (1)
  1. HERBAL NOS [Suspect]
     Active Substance: HERBALS
     Indication: Product used for unknown indication
     Dosage: OTHER QUANTITY : 3 GULPS;?
     Route: 048

REACTIONS (12)
  - Toxicity to various agents [None]
  - Vomiting [None]
  - Diarrhoea [None]
  - Paralysis [None]
  - Blindness [None]
  - Gait inability [None]
  - Chills [None]
  - Irregular breathing [None]
  - Hallucination [None]
  - Fear [None]
  - Poisoning [None]
  - Product label issue [None]

NARRATIVE: CASE EVENT DATE: 20240804
